FAERS Safety Report 8990103 (Version 4)
Quarter: 2013Q1

REPORT INFORMATION
  Report Type: Spontaneous
  Country: AU (occurrence: AU)
  Receive Date: 20121228
  Receipt Date: 20130206
  Transmission Date: 20140127
  Serious: Yes (Other)
  Sender: FDA-Public Use
  Company Number: AU-AMGEN-AUSSP2012079082

PATIENT
  Sex: Male

DRUGS (3)
  1. ENBREL [Suspect]
     Indication: PRODUCT USED FOR UNKNOWN INDICATION
     Dosage: UNK
     Dates: start: 20121122
  2. PIROXICAM [Concomitant]
     Dosage: 20 MG, 2X/DAY
  3. OMEPRAZOLE [Concomitant]
     Dosage: 20 MG, 2X/DAY

REACTIONS (9)
  - Haemorrhage [Recovered/Resolved]
  - Pruritus [Recovered/Resolved]
  - Inflammation [Recovered/Resolved]
  - Night sweats [Unknown]
  - Injection site reaction [Recovered/Resolved]
  - Injection site urticaria [Recovered/Resolved]
  - Contusion [Recovered/Resolved]
  - Swelling [Recovered/Resolved]
  - Erythema [Recovered/Resolved]
